FAERS Safety Report 25337503 (Version 1)
Quarter: 2025Q2

REPORT INFORMATION
  Report Type: Spontaneous
  Country: US (occurrence: None)
  Receive Date: 20250520
  Receipt Date: 20250520
  Transmission Date: 20250717
  Serious: Yes (Other)
  Sender: FDA-CTU
  Company Number: None

PATIENT
  Sex: Female

DRUGS (12)
  1. DALFAMPRIDINE [Suspect]
     Active Substance: DALFAMPRIDINE
     Indication: Multiple sclerosis
     Dates: start: 20190612
  2. IALBUTEROL POW SULFATE [Concomitant]
  3. AMPYRA TAB [Concomitant]
  4. ATENOLOL [Concomitant]
     Active Substance: ATENOLOL
  5. BACLOFEN [Concomitant]
     Active Substance: BACLOFEN
  6. BACLOFEN TAB [Concomitant]
  7. BIOTIN CAP 2500MCG [Concomitant]
  8. DITROPAN XL TAB [Concomitant]
  9. DITROPAN XL TAB [Concomitant]
  10. FLUOXETINE CAP [Concomitant]
  11. FLUOXETINE CAP [Concomitant]
  12. NYSTATIN [Concomitant]
     Active Substance: NYSTATIN

REACTIONS (1)
  - Seizure [None]
